FAERS Safety Report 15307231 (Version 1)
Quarter: 2018Q3

REPORT INFORMATION
  Report Type: Spontaneous
  Country: US (occurrence: US)
  Receive Date: 20180822
  Receipt Date: 20180822
  Transmission Date: 20181010
  Serious: Yes (Other)
  Sender: FDA-Public Use
  Company Number: US-GLAXOSMITHKLINE-US2018GSK151063

PATIENT
  Sex: Female

DRUGS (1)
  1. PREVACID [Suspect]
     Active Substance: LANSOPRAZOLE
     Indication: ABDOMINAL DISCOMFORT
     Dosage: 15 MG, 1D
     Route: 065

REACTIONS (3)
  - Urinary tract infection [Unknown]
  - Chronic kidney disease [Unknown]
  - Renal impairment [Unknown]
